FAERS Safety Report 20330934 (Version 2)
Quarter: 2022Q1

REPORT INFORMATION
  Report Type: Spontaneous
  Country: US (occurrence: None)
  Receive Date: 20220113
  Receipt Date: 20220121
  Transmission Date: 20220423
  Serious: Yes (Other)
  Sender: FDA-Public Use
  Company Number: US-ROCHE-2998598

PATIENT
  Age: 78 Year
  Sex: Female

DRUGS (3)
  1. HERCEPTIN [Suspect]
     Active Substance: TRASTUZUMAB
     Indication: Triple positive breast cancer
     Route: 041
  2. HERCEPTIN HYLECTA [Suspect]
     Active Substance: HYALURONIDASE-OYSK\TRASTUZUMAB
     Indication: Triple positive breast cancer
     Route: 058
  3. ANASTROZOLE [Suspect]
     Active Substance: ANASTROZOLE
     Indication: Triple positive breast cancer
     Route: 065

REACTIONS (13)
  - Pericardial effusion [Unknown]
  - Irritable bowel syndrome [Unknown]
  - Insomnia [Unknown]
  - Seasonal allergy [Unknown]
  - Nail disorder [Unknown]
  - Arthralgia [Unknown]
  - Nasal congestion [Unknown]
  - Headache [Unknown]
  - Epistaxis [Unknown]
  - Stomatitis [Not Recovered/Not Resolved]
  - Acne [Unknown]
  - Diarrhoea [Unknown]
  - Sinus disorder [Unknown]
